FAERS Safety Report 4448365-9 (Version None)
Quarter: 2004Q3

REPORT INFORMATION
  Report Type: 
  Country: None (occurrence: None)
  Receive Date: 20040910
  Receipt Date: 20040910
  Transmission Date: 20050211
  Serious: Yes (Death)
  Sender: FDA-Public Use
  Company Number: None

PATIENT
  Age: 43 Year
  Sex: Female
  Weight: 85 kg

DRUGS (61)
  1. DENILEUKIN DIFTITOX 300MCG/2ML SERAGEN,INC./LIGAND [Suspect]
     Indication: GRAFT VERSUS HOST DISEASE
     Dosage: 4.5MCG/KG DAILY X 5 INTRAVENOUS
     Route: 042
     Dates: start: 20040830, end: 20040901
  2. DENILEUKIN DIFTITOX 300MCG/2ML SERAGEN,INC./LIGAND [Suspect]
     Indication: GRAFT VERSUS HOST DISEASE
     Dosage: 9MCG/KG ONCE A WK X 4 INTRAVENOUS
     Route: 042
     Dates: start: 20040906, end: 20040906
  3. ACYCLOVIR SODIUM [Concomitant]
  4. TPN [Concomitant]
  5. AMLODIPINE BESYLATE [Concomitant]
  6. ACETAMINOPHEN [Concomitant]
  7. ATROPINE SULFATE [Concomitant]
  8. CALCIUM GLUCONATE [Concomitant]
  9. CEFEPINE HCL [Concomitant]
  10. CEPHALEXIN [Concomitant]
  11. CHLORPROMAZINE HCL [Concomitant]
  12. CHLORHEXIDINE GLUCONATE [Concomitant]
  13. CLONAZEPAM [Concomitant]
  14. CLONIDINE HCL [Concomitant]
  15. D50W [Concomitant]
  16. D70W [Concomitant]
  17. DAPSONE [Concomitant]
  18. DICYCLOMINE HCL INJ [Concomitant]
  19. DOLASETRON MESYLATE [Concomitant]
  20. DOPAMINE HCL [Concomitant]
  21. DIPHENHYDRAMINE HCL [Concomitant]
  22. DRONABINOAL [Concomitant]
  23. FAMOTIDINE [Concomitant]
  24. FILGRASTIM [Concomitant]
  25. GUAIFENESIN [Concomitant]
  26. HYDROCORTISONE SOD. S. [Concomitant]
  27. HEPARIN SODIUM [Concomitant]
  28. INSULIN ASPART [Concomitant]
  29. INSULIN REG. HUMAN RE. [Concomitant]
  30. INSULIN NPH  HUMAN RE. [Concomitant]
  31. LIDOCAINE [Concomitant]
  32. LOPERAMIDE HCL [Concomitant]
  33. LORAZEPAM [Concomitant]
  34. MAGNESIUM SULFATE [Concomitant]
  35. MEROPENEM [Concomitant]
  36. MAG CHLORIDE [Concomitant]
  37. MAG. HYDROX/AL. HYDROX [Concomitant]
  38. MIDAZOLAM HCL [Concomitant]
  39. MIRTAZAPINE [Concomitant]
  40. MORPHINE SULFATE [Concomitant]
  41. METHYPREDNISOLONE S [Concomitant]
  42. NS [Concomitant]
  43. NOREPINEPHRINE BITAR [Concomitant]
  44. ONDANSETRON [Concomitant]
  45. OCTMETAZOLINE HCL [Concomitant]
  46. PROMETHAZINE HCL [Concomitant]
  47. KCL TAB [Concomitant]
  48. K PHOSPHATE [Concomitant]
  49. 1/2 NS [Concomitant]
  50. SERTRALINE HCL [Concomitant]
  51. NA ACETATE [Concomitant]
  52. SODIUM BOCARB [Concomitant]
  53. NA PHOSPHATE [Concomitant]
  54. PROGRAF [Concomitant]
  55. TETRACAIN/BENZOCAINE [Concomitant]
  56. TOBRAMYCIN SULFATE [Concomitant]
  57. VANCOMYCIN HCL [Concomitant]
  58. VASOPRESSIN [Concomitant]
  59. PHYTONADIONE [Concomitant]
  60. VORICONAZOLE [Concomitant]
  61. ZOLPIDEM TARTRATE [Concomitant]

REACTIONS (6)
  - ABSCESS [None]
  - BACTERIAL INFECTION [None]
  - DEPRESSED LEVEL OF CONSCIOUSNESS [None]
  - HYPOTENSION [None]
  - LETHARGY [None]
  - SEPSIS [None]
